FAERS Safety Report 13043972 (Version 1)
Quarter: 2016Q4

REPORT INFORMATION
  Report Type: Spontaneous
  Country: US (occurrence: US)
  Receive Date: 20161220
  Receipt Date: 20161220
  Transmission Date: 20170207
  Serious: No
  Sender: FDA-Public Use
  Company Number: US-ROCHE-1013334

PATIENT
  Sex: Male
  Weight: 211 kg

DRUGS (5)
  1. ZELBORAF [Suspect]
     Active Substance: VEMURAFENIB
     Indication: METASTATIC MALIGNANT MELANOMA
     Route: 048
     Dates: start: 20111104
  2. XANAX [Concomitant]
     Active Substance: ALPRAZOLAM
     Indication: ANXIETY
     Route: 048
     Dates: start: 20110307
  3. VITAMIN B6 [Concomitant]
     Active Substance: PYRIDOXINE HYDROCHLORIDE
     Route: 048
     Dates: start: 20110307
  4. VITAMIN B12 [Concomitant]
     Active Substance: CYANOCOBALAMIN
     Route: 048
     Dates: start: 20110307
  5. CENTRUM [Concomitant]
     Active Substance: VITAMINS
     Route: 065

REACTIONS (9)
  - Decreased appetite [Unknown]
  - Flushing [Unknown]
  - Alopecia [Unknown]
  - Fatigue [Unknown]
  - Pain of skin [Unknown]
  - Mass [Unknown]
  - Sunburn [Unknown]
  - Rash [Unknown]
  - Arthralgia [Unknown]
